FAERS Safety Report 5715263-X (Version None)
Quarter: 2008Q2

REPORT INFORMATION
  Report Type: 
  Country: None (occurrence: None)
  Receive Date: 20080422
  Receipt Date: 20080407
  Transmission Date: 20081010
  Serious: Yes (Hospitalization)
  Sender: FDA-Public Use
  Company Number: 2008S1005924

PATIENT
  Age: 60 Year
  Sex: Male

DRUGS (5)
  1. HYDROCODONE BITARTRATE [Suspect]
     Indication: CERVICAL SPINAL STENOSIS
     Dosage: TWICE A DAY; ORAL
     Route: 048
     Dates: start: 20070420, end: 20080325
  2. DIAZEPAM [Suspect]
     Indication: NECK PAIN
     Dosage: 10 MG; ORAL
     Route: 048
     Dates: start: 20070701
  3. TYLENOL W/ CODEINE [Suspect]
     Dosage: DAILY; ORAL
     Route: 048
     Dates: start: 20080301, end: 20080301
  4. ZETIA (CON.) [Concomitant]
  5. AMBIEN (CON.) [Concomitant]

REACTIONS (6)
  - DRUG INTERACTION [None]
  - DRY MOUTH [None]
  - FEELING ABNORMAL [None]
  - FOAMING AT MOUTH [None]
  - GINGIVAL PRURITUS [None]
  - HERNIA [None]
